FAERS Safety Report 18300804 (Version 2)
Quarter: 2020Q3

REPORT INFORMATION
  Report Type: Spontaneous
  Country: US (occurrence: US)
  Receive Date: 20200923
  Receipt Date: 20200923
  Transmission Date: 20201103
  Serious: No
  Sender: FDA-Public Use
  Company Number: US-SHIRE-US202031011

PATIENT
  Sex: Male

DRUGS (4)
  1. GATTEX [Suspect]
     Active Substance: TEDUGLUTIDE\WATER
     Indication: PRODUCT USED FOR UNKNOWN INDICATION
     Dosage: 0.570 UNIT UNKNOWN, 1X/DAY:QD
     Route: 058
     Dates: start: 20190819
  2. GATTEX [Suspect]
     Active Substance: TEDUGLUTIDE\WATER
     Indication: PRODUCT USED FOR UNKNOWN INDICATION
     Dosage: 0.570 UNIT UNKNOWN, 1X/DAY:QD
     Route: 058
     Dates: start: 20190819
  3. GATTEX [Suspect]
     Active Substance: TEDUGLUTIDE\WATER
     Indication: PRODUCT USED FOR UNKNOWN INDICATION
     Dosage: 0.570 UNIT UNKNOWN, 1X/DAY:QD
     Route: 058
     Dates: start: 20190819
  4. GATTEX [Suspect]
     Active Substance: TEDUGLUTIDE\WATER
     Indication: PRODUCT USED FOR UNKNOWN INDICATION
     Dosage: 0.570 UNIT UNKNOWN, 1X/DAY:QD
     Route: 058
     Dates: start: 20190819

REACTIONS (1)
  - Muscle spasms [Not Recovered/Not Resolved]
